FAERS Safety Report 6386737-6 (Version None)
Quarter: 2009Q4

REPORT INFORMATION
  Report Type: 
  Country: None (occurrence: None)
  Receive Date: 20091002
  Receipt Date: 20090923
  Transmission Date: 20100525
  Serious: Yes (Death, Hospitalization)
  Sender: FDA-Public Use
  Company Number: A0758365A

PATIENT
  Age: 70 Year
  Sex: Female
  Weight: 90.9 kg

DRUGS (8)
  1. AVANDIA [Suspect]
     Dosage: 4MG TWICE PER DAY
     Route: 065
     Dates: start: 20060131, end: 20060301
  2. GLUCOTROL XL [Concomitant]
     Dates: start: 20020101, end: 20060101
  3. CLONIDINE [Concomitant]
  4. ENALAPRIL MALEATE [Concomitant]
  5. LASIX [Concomitant]
  6. CARTIA XT [Concomitant]
  7. ATACAND [Concomitant]
  8. LIPITOR [Concomitant]

REACTIONS (3)
  - ANOXIC ENCEPHALOPATHY [None]
  - CARDIAC ARREST [None]
  - CARDIAC FAILURE CONGESTIVE [None]
